FAERS Safety Report 5530373-8 (Version None)
Quarter: 2007Q4

REPORT INFORMATION
  Report Type: 
  Country: None (occurrence: None)
  Receive Date: 20071127
  Receipt Date: 20071109
  Transmission Date: 20080405
  Serious: Yes (Hospitalization)
  Sender: FDA-Public Use
  Company Number: 230051M07FRA

PATIENT
  Age: 58 Year
  Sex: Male

DRUGS (6)
  1. REBIF [Suspect]
     Indication: MULTIPLE SCLEROSIS
     Dosage: 44 MCG, 3 IN 1 WEEKS
     Dates: start: 20020101, end: 20070101
  2. ADVIL [Concomitant]
  3. AMLODIPINE BESYLATE [Concomitant]
  4. ZOXAN (DOXAZOSIN) [Concomitant]
  5. EDUCTYL (EDUCTYL) [Concomitant]
  6. TRANSIPEG (TRANSIPEG) [Concomitant]

REACTIONS (4)
  - DYSPNOEA [None]
  - HAEMOLYSIS [None]
  - RENAL IMPAIRMENT [None]
  - THROMBOTIC MICROANGIOPATHY [None]
